FAERS Safety Report 16237329 (Version 1)
Quarter: 2019Q2

REPORT INFORMATION
  Report Type: Spontaneous
  Country: US (occurrence: US)
  Receive Date: 20190425
  Receipt Date: 20190425
  Transmission Date: 20190711
  Serious: No
  Sender: FDA-Public Use
  Company Number: US-TEVA-2019-US-1040362

PATIENT
  Sex: Female

DRUGS (2)
  1. BACLOFEN. [Suspect]
     Active Substance: BACLOFEN
     Indication: BLADDER SPASM
     Dates: start: 201904
  2. BACLOFEN. [Suspect]
     Active Substance: BACLOFEN
     Indication: URINARY RETENTION

REACTIONS (7)
  - Nausea [Recovering/Resolving]
  - Eructation [Recovering/Resolving]
  - Gastrooesophageal reflux disease [Recovering/Resolving]
  - Oesophagitis [Recovering/Resolving]
  - Dysphagia [Recovering/Resolving]
  - Oesophageal irritation [Recovering/Resolving]
  - Abdominal pain upper [Recovering/Resolving]

NARRATIVE: CASE EVENT DATE: 201904
